FAERS Safety Report 5061167-8 (Version None)
Quarter: 2006Q3

REPORT INFORMATION
  Report Type: 
  Country: None (occurrence: None)
  Receive Date: 20060725
  Receipt Date: 20040702
  Transmission Date: 20061208
  Serious: Yes (Life-Threatening, Hospitalization)
  Sender: FDA-Public Use
  Company Number: JP-ROCHE-373071

PATIENT
  Age: 64 Year
  Sex: Male
  Weight: 60.8 kg

DRUGS (8)
  1. PEG-INTERFERON ALFA 2A (RO 25-8310) [Suspect]
     Route: 058
     Dates: start: 20040419, end: 20040720
  2. PEG-INTERFERON ALFA 2A (RO 25-8310) [Suspect]
     Route: 058
     Dates: start: 20040913
  3. SUMIFERON [Suspect]
     Route: 030
     Dates: start: 20000515, end: 20001014
  4. SUMIFERON [Suspect]
     Route: 030
     Dates: start: 20001016, end: 20021006
  5. SUMIFERON [Suspect]
     Route: 030
     Dates: start: 20021008, end: 20040416
  6. URSO [Concomitant]
     Dosage: START DATE WAS BEFORE 2002
     Route: 048
  7. MAZULENE S [Concomitant]
     Dosage: START DATE BEFORE 2002
     Route: 048
  8. TSUKUSHI AM [Concomitant]
     Dosage: START DATE BEFORE 2002
     Route: 048

REACTIONS (1)
  - GASTRIC CANCER [None]
